FAERS Safety Report 7285321-X (Version None)
Quarter: 2011Q1

REPORT INFORMATION
  Report Type: 
  Country: None (occurrence: None)
  Receive Date: 20110210
  Receipt Date: 20110204
  Transmission Date: 20110831
  Serious: Yes (Other)
  Sender: FDA-Public Use
  Company Number: US-SANOFI-AVENTIS-2011SA007670

PATIENT
  Sex: Female

DRUGS (3)
  1. MULTAQ [Suspect]
     Route: 065
  2. DIURETICS [Concomitant]
  3. ACE INHIBITOR NOS [Concomitant]

REACTIONS (1)
  - RENAL FAILURE [None]
